FAERS Safety Report 6347158-5 (Version None)
Quarter: 2009Q3

REPORT INFORMATION
  Report Type: 
  Country: None (occurrence: None)
  Receive Date: 20090910
  Receipt Date: 20090831
  Transmission Date: 20100115
  Serious: Yes (Hospitalization, Other)
  Sender: FDA-Public Use
  Company Number: PHHY2009CL37945

PATIENT
  Sex: Female

DRUGS (4)
  1. CYCLOSPORINE [Suspect]
     Indication: RENAL TRANSPLANT
     Dosage: 100 MG, Q12H
  2. AZATHIOPRINE [Concomitant]
     Indication: RENAL TRANSPLANT
     Dosage: 125 MG
  3. PREDNISOLONE [Concomitant]
     Indication: RENAL TRANSPLANT
     Dosage: 9 MG/DAY
  4. GLUCOCORTICOIDS [Concomitant]
     Route: 042

REACTIONS (9)
  - ABORTION SPONTANEOUS [None]
  - BLOOD CREATININE DECREASED [None]
  - CAESAREAN SECTION [None]
  - CHOLESTASIS OF PREGNANCY [None]
  - DRUG EXPOSURE DURING PREGNANCY [None]
  - HYPERTENSION [None]
  - MULTIPLE PREGNANCY [None]
  - PREMATURE LABOUR [None]
  - TACHYCARDIA [None]
